FAERS Safety Report 19321820 (Version 4)
Quarter: 2022Q1

REPORT INFORMATION
  Report Type: Report from Study
  Country: CO (occurrence: CO)
  Receive Date: 20210528
  Receipt Date: 20220218
  Transmission Date: 20220423
  Serious: Yes (Death, Hospitalization, Other)
  Sender: FDA-Public Use
  Company Number: CO-ABBVIE-17K-036-2172256-00

PATIENT
  Age: 70 Year
  Sex: Male
  Weight: 80 kg

DRUGS (4)
  1. HUMIRA [Suspect]
     Active Substance: ADALIMUMAB
     Indication: Rheumatoid arthritis
     Route: 058
     Dates: start: 20120224
  2. HUMIRA [Suspect]
     Active Substance: ADALIMUMAB
     Indication: Rheumatoid arthritis
     Route: 058
     Dates: end: 20210511
  3. HUMIRA [Suspect]
     Active Substance: ADALIMUMAB
     Route: 058
     Dates: end: 20211105
  4. CALCITRIOL [Concomitant]
     Active Substance: CALCITRIOL
     Indication: Rheumatoid arthritis
     Route: 048

REACTIONS (8)
  - Prostate cancer metastatic [Fatal]
  - Asthenia [Recovering/Resolving]
  - Haemoglobin decreased [Recovering/Resolving]
  - Prostate cancer [Recovering/Resolving]
  - Prostate cancer metastatic [Recovering/Resolving]
  - Metastases to bone [Recovering/Resolving]
  - Vomiting [Recovering/Resolving]
  - Post procedural haematuria [Unknown]

NARRATIVE: CASE EVENT DATE: 20170501
